FAERS Safety Report 9687147 (Version 3)
Quarter: 2014Q1

REPORT INFORMATION
  Report Type: Report from Study
  Country: US (occurrence: US)
  Receive Date: 20131113
  Receipt Date: 20140224
  Transmission Date: 20141002
  Serious: Yes (Hospitalization)
  Sender: FDA-Public Use
  Company Number: US-ROCHE-1298777

PATIENT
  Age: 76 Year
  Sex: Female
  Weight: 44.6 kg

DRUGS (16)
  1. VISMODEGIB [Suspect]
     Indication: PANCREATIC CARCINOMA
     Dosage: 28 DAY CYCLE.?START DATE OF LAST CYCLE PRIOR TO PULMONARY EMBOLI AND LOWER EXTREMITY DEEP VEIN THROM
     Route: 048
     Dates: start: 20131019
  2. VISMODEGIB [Suspect]
     Route: 048
     Dates: start: 20131106
  3. VISMODEGIB [Suspect]
     Route: 048
     Dates: start: 20140207
  4. SIROLIMUS [Suspect]
     Indication: PANCREATIC CARCINOMA
     Dosage: 28 DAY CYCLE.?START DATE OF LAST CYCLE PRIOR TO PULMONARY EMBOLI AND LOWER EXTREMITY DEEP VEIN THROM
     Route: 048
     Dates: start: 20131019, end: 20131031
  5. SIROLIMUS [Suspect]
     Route: 048
     Dates: start: 20131106
  6. SIROLIMUS [Suspect]
     Route: 048
     Dates: start: 20140207
  7. OMEPRAZOLE [Suspect]
     Indication: PRODUCT USED FOR UNKNOWN INDICATION
     Route: 048
  8. OXYCONTIN [Suspect]
     Indication: PRODUCT USED FOR UNKNOWN INDICATION
     Route: 048
  9. ROXICODONE [Suspect]
     Indication: CANCER PAIN
     Dosage: 5-10 MG
     Route: 048
  10. ATIVAN [Suspect]
     Indication: NAUSEA
     Route: 048
  11. ATIVAN [Suspect]
     Indication: SLEEP DISORDER
  12. ATIVAN [Suspect]
     Indication: ANXIETY
  13. COMPAZINE [Concomitant]
     Indication: NAUSEA
     Route: 048
  14. COMPAZINE [Concomitant]
     Indication: SLEEP DISORDER
  15. COMPAZINE [Concomitant]
     Indication: ANXIETY
  16. ZOFRAN [Concomitant]
     Indication: NAUSEA
     Route: 048

REACTIONS (8)
  - Pulmonary embolism [Unknown]
  - Deep vein thrombosis [Unknown]
  - Lethargy [Recovering/Resolving]
  - Anaemia [Recovering/Resolving]
  - Dehydration [Recovering/Resolving]
  - Hypotension [Recovering/Resolving]
  - Decreased appetite [Recovering/Resolving]
  - Escherichia infection [Recovering/Resolving]
